FAERS Safety Report 4955983-8 (Version None)
Quarter: 2006Q1

REPORT INFORMATION
  Report Type: 
  Country: None (occurrence: None)
  Receive Date: 20060328
  Receipt Date: 20051104
  Transmission Date: 20060701
  Serious: Yes (Hospitalization, Disabling)
  Sender: FDA-Public Use
  Company Number: US-MERCK-0511USA00772

PATIENT
  Age: 64 Year
  Sex: Male
  Weight: 86 kg

DRUGS (19)
  1. AMARYL [Concomitant]
     Route: 065
  2. VERELAN [Concomitant]
     Route: 065
  3. PRINIVIL [Concomitant]
     Route: 065
  4. COZAAR [Concomitant]
     Route: 065
  5. PROTONIX [Concomitant]
     Route: 065
  6. HYZAAR [Concomitant]
     Route: 065
  7. ADVICOR [Concomitant]
     Route: 065
  8. NITROQUICK [Concomitant]
     Route: 065
  9. MECLIZINE [Concomitant]
     Route: 065
  10. PROMETHAZINE [Concomitant]
     Route: 065
  11. AMIODARONE [Concomitant]
     Route: 065
  12. VIOXX [Suspect]
     Indication: ARTHRALGIA
     Route: 048
     Dates: start: 20000901, end: 20040901
  13. LIPITOR [Concomitant]
     Route: 065
  14. CARTIA (ASPIRIN) [Concomitant]
     Route: 065
  15. ATENOLOL [Concomitant]
     Route: 065
  16. LEVAQUIN [Concomitant]
     Route: 065
  17. NEXIUM [Concomitant]
     Route: 065
  18. UROCIT-K [Concomitant]
     Route: 065
  19. MACROBID [Concomitant]
     Route: 065

REACTIONS (8)
  - ARRHYTHMIA [None]
  - ATRIAL FIBRILLATION [None]
  - CHEST PAIN [None]
  - INGUINAL HERNIA [None]
  - ISCHAEMIC CARDIOMYOPATHY [None]
  - MUSCLE STRAIN [None]
  - MYOCARDIAL INFARCTION [None]
  - SUPRAVENTRICULAR TACHYCARDIA [None]
